FAERS Safety Report 8887770 (Version 3)
Quarter: 2012Q4

REPORT INFORMATION
  Report Type: 
  Country: JP (occurrence: JP)
  Receive Date: 20121106
  Receipt Date: 20121119
  Transmission Date: 20130627
  Serious: Yes (Other)
  Sender: FDA-Public Use
  Company Number: JP-009507513-1211JPN000496

PATIENT
  Age: 60 Year
  Sex: Female

DRUGS (2)
  1. THERAPY UNSPECIFIED [Suspect]
     Indication: HYPERCALCAEMIA
     Dosage: 35 mg, qw
     Route: 048
  2. THERAPY UNSPECIFIED [Suspect]
     Indication: OSTEOPOROSIS

REACTIONS (3)
  - Atypical femur fracture [Unknown]
  - Fracture delayed union [Unknown]
  - Osteosclerosis [Unknown]
